FAERS Safety Report 14635538 (Version 3)
Quarter: 2018Q2

REPORT INFORMATION
  Report Type: Spontaneous
  Country: US (occurrence: US)
  Receive Date: 20180314
  Receipt Date: 20180427
  Transmission Date: 20180711
  Serious: Yes (Other)
  Sender: FDA-Public Use
  Company Number: US-ASTRAZENECA-2018SE25554

PATIENT
  Age: 21967 Day
  Sex: Female
  Weight: 96.2 kg

DRUGS (7)
  1. BRILINTA [Suspect]
     Active Substance: TICAGRELOR
     Route: 048
     Dates: start: 20171113, end: 20180205
  2. VITAMIN D [Concomitant]
     Active Substance: CHOLECALCIFEROL
     Dosage: 3000
  3. MECLIZINE [Concomitant]
     Active Substance: MECLIZINE HYDROCHLORIDE
     Indication: VERTIGO
     Route: 048
     Dates: start: 201709
  4. GABAPENTIN. [Concomitant]
     Active Substance: GABAPENTIN
     Indication: BACK PAIN
     Dosage: 600 MG WAS PRESCRIBED 3 X DAY BUT TAKE ONLY 2 X DAY BEEN TAKING IT FOR A LONG TIME NOW
     Route: 048
  5. ARTROTEC [Concomitant]
     Active Substance: DICLOFENAC SODIUM
  6. AMBIEN [Concomitant]
     Active Substance: ZOLPIDEM TARTRATE
  7. NEURONTIN [Concomitant]
     Active Substance: GABAPENTIN
     Dosage: 1200MG QR
     Route: 061

REACTIONS (9)
  - Speech disorder [Recovered/Resolved]
  - Panic attack [Unknown]
  - Drug prescribing error [Unknown]
  - Depression [Recovered/Resolved]
  - Feeling abnormal [Recovered/Resolved]
  - Emotional disorder [Recovered/Resolved]
  - Gait disturbance [Recovered/Resolved]
  - Contusion [Recovered/Resolved]
  - Pain in extremity [Recovered/Resolved]

NARRATIVE: CASE EVENT DATE: 20171113
